FAERS Safety Report 6980225-1 (Version None)
Quarter: 2010Q3

REPORT INFORMATION
  Report Type: 
  Country: None (occurrence: None)
  Receive Date: 20100914
  Receipt Date: 20100902
  Transmission Date: 20110219
  Serious: Yes (Hospitalization, Other)
  Sender: FDA-Public Use
  Company Number: JP-ROCHE-691990

PATIENT
  Sex: Female
  Weight: 43.9 kg

DRUGS (17)
  1. TOCILIZUMAB [Suspect]
     Indication: RHEUMATOID ARTHRITIS
     Route: 041
     Dates: start: 20090423, end: 20090423
  2. TOCILIZUMAB [Suspect]
     Route: 041
     Dates: start: 20090521, end: 20090521
  3. TOCILIZUMAB [Suspect]
     Route: 041
     Dates: start: 20090625, end: 20090625
  4. TOCILIZUMAB [Suspect]
     Route: 041
     Dates: start: 20090723, end: 20090723
  5. TOCILIZUMAB [Suspect]
     Route: 041
     Dates: start: 20090820, end: 20090820
  6. TOCILIZUMAB [Suspect]
     Route: 041
     Dates: start: 20090917, end: 20090917
  7. TOCILIZUMAB [Suspect]
     Route: 041
     Dates: start: 20091015, end: 20091015
  8. TOCILIZUMAB [Suspect]
     Dosage: ACTION TAKEN: UNKNOWN
     Route: 041
     Dates: start: 20091112, end: 20091112
  9. TOCILIZUMAB [Suspect]
     Route: 041
     Dates: start: 20091210, end: 20091210
  10. TOCILIZUMAB [Suspect]
     Route: 041
     Dates: start: 20100107, end: 20100107
  11. TOCILIZUMAB [Suspect]
     Route: 041
     Dates: start: 20100204, end: 20100204
  12. RHEUMATREX [Suspect]
     Indication: RHEUMATOID ARTHRITIS
     Route: 048
     Dates: start: 20070802
  13. PREDNISOLONE [Suspect]
     Indication: RHEUMATOID ARTHRITIS
     Route: 048
  14. CELCOX [Concomitant]
     Dosage: DRUG NAME REPORTED: CELECOX (CELECOXIB)
     Route: 048
  15. STOGAR [Concomitant]
     Route: 048
  16. MUCOSTA [Concomitant]
     Dosage: DOSE FORM: PERORAL AGENT
     Route: 048
  17. FOLIAMIN [Concomitant]
     Dosage: DOSE FORM: PERORAL AGENT
     Route: 048

REACTIONS (5)
  - ACUTE TONSILLITIS [None]
  - COUGH [None]
  - NASOPHARYNGITIS [None]
  - STOMATITIS [None]
  - SUDDEN HEARING LOSS [None]
